FAERS Safety Report 5137894-0 (Version None)
Quarter: 2006Q4

REPORT INFORMATION
  Report Type: 
  Country: None (occurrence: None)
  Receive Date: 20061030
  Receipt Date: 20060206
  Transmission Date: 20070319
  Serious: No
  Sender: FDA-Public Use
  Company Number: US-GLAXOSMITHKLINE-A0592480A

PATIENT
  Age: 50 Year
  Sex: Female
  Weight: 128.6 kg

DRUGS (6)
  1. ADVAIR HFA [Suspect]
     Indication: DRUG USE FOR UNKNOWN INDICATION
     Route: 055
  2. DILANTIN [Concomitant]
     Route: 048
  3. TOPAMAX [Concomitant]
     Route: 048
  4. CLOZAPINE [Concomitant]
  5. BACTRIM DS [Concomitant]
     Indication: URINARY TRACT INFECTION
     Dosage: 1TAB TWICE PER DAY
     Route: 048
     Dates: start: 20060107
  6. LEVALL [Concomitant]
     Indication: COUGH
     Dosage: 1TSP TWICE PER DAY
     Route: 048
     Dates: start: 20060107

REACTIONS (1)
  - DYSPNOEA [None]
